FAERS Safety Report 11230779 (Version 1)
Quarter: 2015Q2

REPORT INFORMATION
  Report Type: Spontaneous
  Country: US (occurrence: None)
  Receive Date: 20150629
  Receipt Date: 20150629
  Transmission Date: 20150821
  Serious: Yes (Disabling)
  Sender: FDA-Public Use
  Company Number: None

PATIENT
  Age: 42 Year
  Sex: Female
  Weight: 72.58 kg

DRUGS (17)
  1. LEXAPRO [Concomitant]
     Active Substance: ESCITALOPRAM OXALATE
  2. LASIX [Concomitant]
     Active Substance: FUROSEMIDE
  3. FLORASTOR [Concomitant]
     Active Substance: SACCHAROMYCES CEREVISIAE
  4. PERCOCET [Concomitant]
     Active Substance: ACETAMINOPHEN\OXYCODONE HYDROCHLORIDE
  5. TYLENOL [Concomitant]
     Active Substance: ACETAMINOPHEN
  6. ESZOPICLONE 2 MG GLENMARK [Suspect]
     Active Substance: ESZOPICLONE
     Indication: INSOMNIA
     Dosage: 1 PILL
     Route: 048
     Dates: start: 20150625, end: 20150626
  7. COREG [Concomitant]
     Active Substance: CARVEDILOL
  8. WELLBUTRIN [Concomitant]
     Active Substance: BUPROPION HYDROCHLORIDE
  9. XANAX [Concomitant]
     Active Substance: ALPRAZOLAM
  10. NAPROXEN. [Concomitant]
     Active Substance: NAPROXEN
  11. SUDAFED [Concomitant]
     Active Substance: PSEUDOEPHEDRINE HYDROCHLORIDE
  12. STOOL SOFTENER [Concomitant]
     Active Substance: DOCUSATE CALCIUM
  13. PEPCID [Concomitant]
     Active Substance: FAMOTIDINE
  14. POTASSIUM CHLORIDE (K-TAB) [Concomitant]
  15. KLONIPIN [Concomitant]
     Active Substance: CLONAZEPAM
  16. ALBUTEROL. [Concomitant]
     Active Substance: ALBUTEROL
  17. METHOCARBAMOL. [Concomitant]
     Active Substance: METHOCARBAMOL

REACTIONS (15)
  - Product substitution issue [None]
  - Hangover [None]
  - Headache [None]
  - Feeling abnormal [None]
  - Product quality issue [None]
  - Nightmare [None]
  - Feeling jittery [None]
  - Initial insomnia [None]
  - Middle insomnia [None]
  - Sleep terror [None]
  - Nausea [None]
  - Irritability [None]
  - No therapeutic response [None]
  - Dizziness [None]
  - Balance disorder [None]

NARRATIVE: CASE EVENT DATE: 20150626
